FAERS Safety Report 19014506 (Version 1)
Quarter: 2021Q1

REPORT INFORMATION
  Report Type: Spontaneous
  Country: CA (occurrence: CA)
  Receive Date: 20210317
  Receipt Date: 20210317
  Transmission Date: 20210420
  Serious: Yes (Other)
  Sender: FDA-Public Use
  Company Number: CA-JNJFOC-20210324012

PATIENT
  Age: 22 Year
  Sex: Male
  Weight: 82 kg

DRUGS (1)
  1. INFLIXIMAB, RECOMBINANT [Suspect]
     Active Substance: INFLIXIMAB
     Indication: CROHN^S DISEASE
     Route: 042

REACTIONS (5)
  - Poor venous access [Recovered/Resolved]
  - Dizziness [Recovered/Resolved]
  - Confusional state [Recovered/Resolved]
  - Muscle twitching [Recovered/Resolved]
  - Syncope [Recovered/Resolved]
